FAERS Safety Report 6089352-7 (Version None)
Quarter: 2009Q1

REPORT INFORMATION
  Report Type: 
  Country: None (occurrence: None)
  Receive Date: 20090224
  Receipt Date: 20090219
  Transmission Date: 20090719
  Serious: Yes (Death)
  Sender: FDA-Public Use
  Company Number: PHHY2008JP32554

PATIENT
  Sex: Male

DRUGS (5)
  1. DIOVAN [Suspect]
     Indication: HYPERTENSION
     Dosage: 80 MG, QD
     Dates: start: 20080404, end: 20081124
  2. WARFARIN SODIUM [Concomitant]
     Dosage: 1 MG, UNK
     Route: 048
     Dates: start: 20070827
  3. DIGOXIN [Concomitant]
     Dosage: 0.125 MG, UNK
     Route: 048
     Dates: start: 20070827
  4. PLAVIX [Concomitant]
     Dosage: 75 MG, UNK
     Route: 048
     Dates: start: 20070827
  5. ATELEC [Concomitant]
     Dosage: 10 MG, UNK
     Route: 048
     Dates: start: 20070827

REACTIONS (1)
  - SUDDEN DEATH [None]
